FAERS Safety Report 6028928-X (Version None)
Quarter: 2008Q4

REPORT INFORMATION
  Report Type: 
  Country: None (occurrence: None)
  Receive Date: 20081222
  Receipt Date: 20081103
  Transmission Date: 20090506
  Serious: No
  Sender: FDA-Public Use
  Company Number: ALL1-2008-03189

PATIENT
  Age: 8 Year
  Sex: Male
  Weight: 27.2 kg

DRUGS (3)
  1. VYVANSE [Suspect]
     Indication: ATTENTION DEFICIT/HYPERACTIVITY DISORDER
     Dosage: 30 MG, 1X/DAY:QD, ORAL : 1X/DAY:QD, ORAL :30 MG, 1X/DAY:QD, ORAL
     Route: 048
     Dates: start: 20080301, end: 20080101
  2. VYVANSE [Suspect]
     Indication: ATTENTION DEFICIT/HYPERACTIVITY DISORDER
     Dosage: 30 MG, 1X/DAY:QD, ORAL : 1X/DAY:QD, ORAL :30 MG, 1X/DAY:QD, ORAL
     Route: 048
     Dates: start: 20080101, end: 20080301
  3. VYVANSE [Suspect]
     Indication: ATTENTION DEFICIT/HYPERACTIVITY DISORDER
     Dosage: 30 MG, 1X/DAY:QD, ORAL : 1X/DAY:QD, ORAL :30 MG, 1X/DAY:QD, ORAL
     Route: 048
     Dates: start: 20080801

REACTIONS (5)
  - DRUG EFFECT DECREASED [None]
  - MIGRAINE [None]
  - MOOD ALTERED [None]
  - NAUSEA [None]
  - VOMITING [None]
